FAERS Safety Report 8331931-8 (Version None)
Quarter: 2012Q2

REPORT INFORMATION
  Report Type: 
  Country: None (occurrence: None)
  Receive Date: 20120502
  Receipt Date: 20120420
  Transmission Date: 20120825
  Serious: Yes (Disabling)
  Sender: FDA-Public Use
  Company Number: JP-ELI_LILLY_AND_COMPANY-JP201204006200

PATIENT
  Age: 65 Year
  Sex: Female

DRUGS (16)
  1. ISONIAZID [Concomitant]
  2. IRBETAN [Concomitant]
     Dosage: UNK
  3. TEPRENONE [Concomitant]
     Dosage: UNK
     Route: 048
  4. METHOTREXATE [Concomitant]
     Dosage: 5.0 MG, WEEKLY (1/W)
     Route: 048
  5. DICLOFENAC SODIUM [Concomitant]
     Dosage: UNK
     Route: 048
  6. CINAL [Concomitant]
     Dosage: UNK
  7. SULFASALAZINE [Concomitant]
     Dosage: 2 UNK, UNK
     Route: 048
  8. ENBREL [Concomitant]
  9. FORTEO [Suspect]
     Dosage: UNK
     Route: 058
     Dates: end: 20120228
  10. LANSOPRAZOLE [Concomitant]
     Dosage: UNK
  11. ALENDRONATE SODIUM [Concomitant]
     Dosage: UNK UNK, WEEKLY (1/W)
     Route: 048
  12. PINDOLOL [Concomitant]
     Dosage: UNK
     Route: 048
  13. PREDNISOLONE [Concomitant]
     Dosage: UNK
     Dates: start: 20120202
  14. TRICHLORMETHIAZIDE [Concomitant]
     Dosage: UNK
  15. MECOBALAMIN [Concomitant]
     Dosage: UNK
     Route: 048
  16. ETODOLAC [Concomitant]
     Dosage: UNK
     Route: 048
     Dates: start: 20120303

REACTIONS (4)
  - ABDOMINAL PAIN UPPER [None]
  - NAUSEA [None]
  - DECREASED APPETITE [None]
  - RENAL IMPAIRMENT [None]
